FAERS Safety Report 10505340 (Version 1)
Quarter: 2014Q4

REPORT INFORMATION
  Report Type: Spontaneous
  Country: US (occurrence: US)
  Receive Date: 20141008
  Receipt Date: 20141008
  Transmission Date: 20150528
  Serious: Yes (Hospitalization, Other)
  Sender: FDA-Public Use
  Company Number: US-BAUSCH-BL-2014-006253

PATIENT
  Age: 29 Year
  Sex: Male

DRUGS (1)
  1. XENAZINE [Suspect]
     Active Substance: TETRABENAZINE
     Indication: DYSKINESIA
     Route: 048
     Dates: start: 20130709

REACTIONS (4)
  - Off label use [Not Recovered/Not Resolved]
  - Drug administration error [Not Recovered/Not Resolved]
  - Affective disorder [Recovering/Resolving]
  - Drug interaction [None]

NARRATIVE: CASE EVENT DATE: 20130709
